FAERS Safety Report 12000700 (Version 2)
Quarter: 2016Q1

REPORT INFORMATION
  Report Type: Spontaneous
  Country: US (occurrence: US)
  Receive Date: 20160204
  Receipt Date: 20160212
  Transmission Date: 20160526
  Serious: No
  Sender: FDA-Public Use
  Company Number: US-PFIZER INC-2016009749

PATIENT
  Age: 74 Year
  Sex: Female
  Weight: 62.6 kg

DRUGS (1)
  1. CHANTIX [Suspect]
     Active Substance: VARENICLINE TARTRATE
     Indication: SMOKING CESSATION THERAPY
     Dosage: 0.5MG ONE TABLET BY MOUTH TWICE A DAY
     Route: 048

REACTIONS (3)
  - Intentional product misuse [Unknown]
  - Abnormal dreams [Recovered/Resolved]
  - Insomnia [Unknown]

NARRATIVE: CASE EVENT DATE: 201512
